FAERS Safety Report 8557951-6 (Version None)
Quarter: 2012Q3

REPORT INFORMATION
  Report Type: 
  Country: None (occurrence: None)
  Receive Date: 20120801
  Receipt Date: 20120724
  Transmission Date: 20120928
  Serious: Yes (Hospitalization, Other)
  Sender: FDA-Public Use
  Company Number: US-JNJFOC-20120708239

PATIENT
  Age: 14 Year
  Sex: Male

DRUGS (2)
  1. REMICADE [Suspect]
     Dosage: 10 (UNITS UNSPECIFIED)/KG ADMINSITERED ON 26-JUN
     Route: 042
  2. REMICADE [Suspect]
     Indication: CROHN'S DISEASE
     Dosage: 10 (UNITS UNSPECIFIED)/KG
     Route: 042
     Dates: start: 20100101

REACTIONS (2)
  - PNEUMONIA [None]
  - HISTIOCYTOSIS HAEMATOPHAGIC [None]
